FAERS Safety Report 20597674 (Version 1)
Quarter: 2022Q1

REPORT INFORMATION
  Report Type: Spontaneous
  Country: IT (occurrence: IT)
  Receive Date: 20220315
  Receipt Date: 20220315
  Transmission Date: 20220423
  Serious: Yes (Hospitalization, Other)
  Sender: FDA-Public Use
  Company Number: IT-SA-2022SA021296

PATIENT
  Age: 49 Year
  Sex: Male

DRUGS (4)
  1. LAMIVUDINE [Suspect]
     Active Substance: LAMIVUDINE
     Indication: Acquired immunodeficiency syndrome
     Dosage: 300 MILLIGRAM, QD
     Dates: start: 2014
  2. TENOFOVIR [Suspect]
     Active Substance: TENOFOVIR
     Indication: Acquired immunodeficiency syndrome
     Dosage: 245 MILLIGRAM, QD
     Dates: start: 2014
  3. DARUNAVIR\RITONAVIR [Suspect]
     Active Substance: DARUNAVIR\RITONAVIR
     Indication: Acquired immunodeficiency syndrome
     Dosage: DARUNAVIR 800 MG/RITONAVIR 100 MG DAILY
     Dates: start: 2014
  4. VALGANCICLOVIR [Concomitant]
     Active Substance: VALGANCICLOVIR
     Indication: Antiviral prophylaxis
     Dosage: 900 MILLIGRAM, QD
     Dates: start: 2014

REACTIONS (8)
  - Organising pneumonia [Recovering/Resolving]
  - Immune reconstitution inflammatory syndrome [Recovering/Resolving]
  - Decreased appetite [Recovering/Resolving]
  - Hyperhidrosis [Recovering/Resolving]
  - Weight decreased [Recovering/Resolving]
  - Cryptococcosis [Recovering/Resolving]
  - Pyrexia [Recovering/Resolving]
  - Cough [Recovering/Resolving]

NARRATIVE: CASE EVENT DATE: 20140101
